FAERS Safety Report 14471567 (Version 2)
Quarter: 2018Q1

REPORT INFORMATION
  Report Type: Not Available
  Country: US (occurrence: US)
  Receive Date: 20180131
  Receipt Date: 20180208
  Transmission Date: 20180509
  Serious: Yes (Death)
  Sender: FDA-Public Use
  Company Number: US-NEUROCRINE BIOSCIENCES INC.-2018NBI00293

PATIENT
  Age: 56 Year
  Sex: Female

DRUGS (33)
  1. DIPHENHIST [Concomitant]
     Active Substance: DIPHENHYDRAMINE HYDROCHLORIDE
     Indication: ARTHROPOD BITE
  2. ANTI-DIARRHEAL [Concomitant]
     Active Substance: LOPERAMIDE HYDROCHLORIDE
     Dosage: 2 MG CAPLET: TAKE 2 TABLETS BY MOUTH AFTER 1ST LOOSE STOOL, THEN 1 TABLET AFTER EACH LOOSE STOOL. NO
     Dates: start: 20160629
  3. BENZTROPINE. [Concomitant]
     Active Substance: BENZTROPINE
     Route: 048
     Dates: start: 20171213
  4. AYR SALINE [Concomitant]
     Dosage: SPRAY ONCE IN EACH NOSTRIL THREE TIMES DAILY AS NEEDED
     Route: 045
     Dates: start: 20160626
  5. DIPHENHIST [Concomitant]
     Active Substance: DIPHENHYDRAMINE HYDROCHLORIDE
     Indication: HYPERSENSITIVITY
     Dosage: PRN
     Route: 048
     Dates: start: 20160626
  6. MULTI-VITAMIN [Concomitant]
     Active Substance: .ALPHA.-TOCOPHEROL ACETATE, DL-\ASCORBIC ACID\CYANOCOBALAMIN\FLUORIDE ION\FOLIC ACID\NIACIN\PYRIDOXINE\RIBOFLAVIN\THIAMINE\VITAMIN A\VITAMIN D
     Route: 048
     Dates: start: 20170712
  7. LORATADINE. [Concomitant]
     Active Substance: LORATADINE
     Dosage: TAKE ONE TABLET BY MOUTH DAILY OR TWICE DAILY, NOT TO EXCEED 2 IN 24 HOURS
     Route: 048
     Dates: start: 20160626
  8. ROBITUSSIN DM [Concomitant]
     Active Substance: DEXTROMETHORPHAN HYDROBROMIDE\GUAIFENESIN
     Indication: PULMONARY CONGESTION
  9. INGREZZA [Suspect]
     Active Substance: VALBENAZINE
     Route: 048
     Dates: start: 20180118, end: 20180121
  10. ANTI-DIARRHEAL [Concomitant]
     Active Substance: LOPERAMIDE HYDROCHLORIDE
     Indication: DIARRHOEA
     Dosage: 2 MG CAPLET; TAKE TWO TABS AFTER FIRST LOOSE STOOL THEN 1 TAB THEREAFTER. PRN
     Dates: start: 20160626
  11. CREON [Concomitant]
     Active Substance: PANCRELIPASE AMYLASE\PANCRELIPASE LIPASE\PANCRELIPASE PROTEASE
     Dosage: 36,000 UNITS CAPSULE; TAKE ONE CAPSULE BY MOUTH THREE TIMES DAILY
     Dates: start: 20171102
  12. ROBITUSSIN DM [Concomitant]
     Active Substance: DEXTROMETHORPHAN HYDROBROMIDE\GUAIFENESIN
     Indication: COUGH
     Dosage: TAKE 10 ML BY MOUTH EVERY 12 HOURS AS NEEDED
     Dates: start: 20160626
  13. QUETIAPINE FUMARATE. [Concomitant]
     Active Substance: QUETIAPINE FUMARATE
     Route: 048
     Dates: start: 20171019
  14. CALCIUM CITRATE WITH D [Concomitant]
     Dosage: TAKE TWO TABLETS BY MOUTH TWICE DAILY
     Dates: start: 20170712
  15. LORAZEPAM. [Concomitant]
     Active Substance: LORAZEPAM
     Route: 048
     Dates: start: 20171213
  16. BISAC-EVAC [Concomitant]
     Active Substance: BISACODYL
     Indication: CONSTIPATION
     Dosage: UNWRAP AND INSERT ONE SUPPOSITORY RECTALLY AS NEEDED
     Route: 054
     Dates: start: 20160626
  17. METOPROLOL TARTRATE. [Concomitant]
     Active Substance: METOPROLOL TARTRATE
     Route: 048
     Dates: start: 20171102
  18. MIRTAZAPINE. [Concomitant]
     Active Substance: MIRTAZAPINE
     Indication: AKATHISIA
     Dosage: AT BEDTIME
     Route: 048
     Dates: start: 20171102
  19. OXCARBAZEPINE. [Concomitant]
     Active Substance: OXCARBAZEPINE
     Indication: BIPOLAR DISORDER
     Dosage: 300 MG/5 ML SUSPENSION; TAKE 10 ML BY MOUTH EVERY MORNING AND 15 ML EVERY EVENING
  20. INGREZZA [Suspect]
     Active Substance: VALBENAZINE
     Indication: TARDIVE DYSKINESIA
     Route: 048
     Dates: start: 20180105, end: 20180111
  21. HYDRALAZINE [Concomitant]
     Active Substance: HYDRALAZINE HYDROCHLORIDE
     Dosage: TAKE ONE TABLET BY MOUTH EVERY HOUR UP TO 3 DOSES AS NEEDED SBP } 160 DBP } 92
     Route: 048
     Dates: start: 20160629
  22. POLYETHYLENE GLYCOL 3350. [Concomitant]
     Active Substance: POLYETHYLENE GLYCOL 3350
     Dosage: MIX 17 GRAMS IN 240 ML OF LIQUID AND DRINK TWICE DAILY AS NEEDED
     Dates: start: 20160629
  23. ALMACONE LIQUID [Concomitant]
     Indication: DYSPEPSIA
     Dosage: TAKE 20 ML BY MOUTH EVERY 1 OR 2 HOURS AS NEEDED. DO NOT EXCEED 6 DOSES
     Dates: start: 20160626
  24. HYDROCORTISONE. [Concomitant]
     Active Substance: HYDROCORTISONE
     Indication: PRURITUS
     Dosage: APPLY TO AFFECTED AREA 2-3 TIMES DAILY AS NEEDED
     Dates: start: 20160626
  25. TAMSULOSIN [Concomitant]
     Active Substance: TAMSULOSIN
     Dosage: AT BEDTIME
     Route: 048
     Dates: start: 20171212
  26. VITAMIN E [Concomitant]
     Active Substance: .ALPHA.-TOCOPHEROL
     Route: 048
     Dates: start: 20170712
  27. MILK OF MAGNESIA [Concomitant]
     Active Substance: MAGNESIUM HYDROXIDE
     Dosage: TAKE 2 TABLESPOONFUL BY MOUTH ONCE DAILY WITH 240 ML OF WATER AS NEEDED
     Dates: start: 20160626
  28. SALINE [Concomitant]
     Active Substance: SODIUM CHLORIDE
     Dosage: 0.9% SOLUTION/EXCEL CONT; MAY CLEAN CUTS, SCARPES, ABRASIONS WITH NS, PAT DRY WITH STERILE GAUZE. AP
     Dates: start: 20160629
  29. CLOZAPINE. [Concomitant]
     Active Substance: CLOZAPINE
     Dosage: TAKE THREE 25 MG TABLETS BY MOUTH WITH 100 MG TABLETS IN THE MORNING
     Dates: start: 20171213
  30. ENLYTE SOFTGEL [Concomitant]
     Dosage: TAKE 1 CAPSULE BY MOUTH EVERY MORNING
     Dates: start: 20171102
  31. CLOZAPINE. [Concomitant]
     Active Substance: CLOZAPINE
     Dosage: TAKE ONE 100 MG TABLET BY MOUTH IN THE MORNING AND 2 TABLETS AT BEDTIME
     Dates: start: 20171213
  32. ACETAMINOPHEN. [Concomitant]
     Active Substance: ACETAMINOPHEN
     Indication: PAIN
     Dosage: PRN
     Route: 048
     Dates: start: 20160626
  33. HYDROCORTISONE. [Concomitant]
     Active Substance: HYDROCORTISONE
     Indication: SKIN IRRITATION

REACTIONS (1)
  - Death [Fatal]

NARRATIVE: CASE EVENT DATE: 20180122
